FAERS Safety Report 9628310 (Version 2)
Quarter: 2013Q4

REPORT INFORMATION
  Report Type: Spontaneous
  Country: DK (occurrence: DK)
  Receive Date: 20131017
  Receipt Date: 20131106
  Transmission Date: 20140711
  Serious: Yes (Hospitalization, Other)
  Sender: FDA-Public Use
  Company Number: DK-RANBAXY-2013RR-74204

PATIENT
  Age: 55 Year
  Sex: Male

DRUGS (4)
  1. CLARITHROMYCIN [Suspect]
     Indication: PNEUMONIA
     Dosage: 500 MG
     Route: 048
     Dates: start: 20120130
  2. INSULIN [Concomitant]
     Indication: DIABETES MELLITUS
     Dosage: UNK
     Route: 065
  3. SIMVASTATIN [Concomitant]
     Indication: PRODUCT USED FOR UNKNOWN INDICATION
     Dosage: UNK
     Route: 065
  4. GLUCOSE [Concomitant]
     Indication: HYPOGLYCAEMIA
     Dosage: UNK
     Route: 065

REACTIONS (10)
  - Depressed level of consciousness [Recovered/Resolved]
  - Muscle spasms [Recovered/Resolved]
  - Toxicity to various agents [Unknown]
  - Fall [Recovered/Resolved with Sequelae]
  - Femoral neck fracture [Recovered/Resolved]
  - Hip arthroplasty [Unknown]
  - Hip arthroplasty [Unknown]
  - Arthralgia [Unknown]
  - Pain in extremity [Unknown]
  - Restlessness [Recovered/Resolved]
